FAERS Safety Report 9018011 (Version 1)
Quarter: 2013Q1

REPORT INFORMATION
  Report Type: Spontaneous
  Country: US (occurrence: None)
  Receive Date: 20130110
  Receipt Date: 20130110
  Transmission Date: 20140127
  Serious: Yes (Hospitalization)
  Sender: FDA-Public Use
  Company Number: None

PATIENT
  Age: 75 Year
  Sex: Male
  Weight: 92.08 kg

DRUGS (4)
  1. VELCADE [Suspect]
     Indication: MANTLE CELL LYMPHOMA
     Dosage: 2.7 MG IV WEEKLY
     Route: 042
     Dates: start: 20121011, end: 20130103
  2. TEMSIROLIMUS [Suspect]
     Indication: MANTLE CELL LYMPHOMA
     Dosage: 20 MG  IV WEEKLY
     Route: 042
     Dates: start: 20121011, end: 20130103
  3. ACYCLOVIR [Concomitant]
  4. GABAPENTIN [Concomitant]

REACTIONS (1)
  - Dehydration [None]
